FAERS Safety Report 8457000-4 (Version None)
Quarter: 2012Q2

REPORT INFORMATION
  Report Type: 
  Country: None (occurrence: None)
  Receive Date: 20120621
  Receipt Date: 20120606
  Transmission Date: 20120825
  Serious: No
  Sender: FDA-Public Use
  Company Number: US-ASTRAZENECA-2012SE38320

PATIENT
  Sex: Female

DRUGS (2)
  1. CRESTOR [Suspect]
     Route: 048
  2. PRILOSEC [Suspect]
     Route: 048

REACTIONS (5)
  - ANAEMIA [None]
  - MENSTRUATION IRREGULAR [None]
  - BLOOD IRON DECREASED [None]
  - HAEMORRHAGE [None]
  - GASTROOESOPHAGEAL REFLUX DISEASE [None]
